FAERS Safety Report 10028187 (Version 1)
Quarter: 2014Q1

REPORT INFORMATION
  Report Type: Spontaneous
  Country: US (occurrence: None)
  Receive Date: 20140319
  Receipt Date: 20140319
  Transmission Date: 20141002
  Serious: Yes (Other)
  Sender: FDA-Public Use
  Company Number: ADR-2014-00124

PATIENT
  Age: 15 Year
  Sex: Female

DRUGS (1)
  1. LIORESAL INTRATHECAL (BACLOFEN INJECTION) 500 MCG/ML [Suspect]
     Indication: MUSCLE SPASTICITY

REACTIONS (6)
  - Agitation [None]
  - Dystonia [None]
  - Pruritus [None]
  - Back pain [None]
  - Seroma [None]
  - Cerebrospinal fluid leakage [None]
